FAERS Safety Report 9716087 (Version 1)
Quarter: 2013Q4

REPORT INFORMATION
  Report Type: Spontaneous
  Country: US (occurrence: None)
  Receive Date: 20131126
  Receipt Date: 20131126
  Transmission Date: 20140711
  Serious: Yes (Other)
  Sender: FDA-Public Use
  Company Number: None

PATIENT
  Age: 91 Year
  Sex: Female

DRUGS (1)
  1. FORTEO 600 MCG LILLY [Suspect]
     Dosage: 20 MCG, DAILY, SQ
     Dates: start: 201311, end: 201311

REACTIONS (2)
  - Asthenia [None]
  - Fall [None]
